FAERS Safety Report 9362802 (Version 1)
Quarter: 2013Q2

REPORT INFORMATION
  Report Type: Spontaneous
  Country: US (occurrence: US)
  Receive Date: 20130624
  Receipt Date: 20130624
  Transmission Date: 20140414
  Serious: Yes (Other)
  Sender: FDA-Public Use
  Company Number: US-AMGEN-USASP2013043709

PATIENT
  Age: 54 Year
  Sex: Male
  Weight: 113.38 kg

DRUGS (9)
  1. ENBREL [Suspect]
     Indication: PRODUCT USED FOR UNKNOWN INDICATION
     Dosage: 50 MG, QWK
     Route: 058
  2. FLOVENT [Concomitant]
     Dosage: 44 MUG/AC, UNK
  3. ASPIRIN [Concomitant]
     Dosage: 81 MG, UNK
     Route: 048
  4. STOOL SOFTENER [Concomitant]
     Dosage: 100 MG, UNK
     Route: 048
  5. OXYCONTIN [Concomitant]
     Dosage: 10 MG, UNK
     Route: 048
  6. RAMIPRIL [Concomitant]
     Dosage: 10 MG, UNK
     Route: 048
  7. XANAX [Concomitant]
     Dosage: 2 MG, UNK
     Route: 048
  8. LEFLUNOMIDE [Concomitant]
     Dosage: 10 MG, UNK
     Route: 048
  9. ANDROGEL [Concomitant]
     Dosage: 1 % EX, UNK

REACTIONS (2)
  - Pneumonia [Recovered/Resolved]
  - Bronchitis [Recovered/Resolved]
